FAERS Safety Report 7384012-4 (Version None)
Quarter: 2011Q1

REPORT INFORMATION
  Report Type: 
  Country: None (occurrence: None)
  Receive Date: 20110330
  Receipt Date: 20110321
  Transmission Date: 20110831
  Serious: Yes (Other)
  Sender: FDA-Public Use
  Company Number: US-ASTRAZENECA-2011SE15900

PATIENT
  Age: 51 Year
  Sex: Female

DRUGS (3)
  1. ESTRADIOL [Concomitant]
  2. SEROQUEL [Suspect]
     Indication: DEPRESSION
     Route: 048
     Dates: start: 20100101
  3. GABAPENTIN [Concomitant]

REACTIONS (4)
  - DEPRESSIVE SYMPTOM [None]
  - DRUG INEFFECTIVE [None]
  - SELF-INJURIOUS IDEATION [None]
  - SCHIZOPHRENIA [None]
